FAERS Safety Report 6611849-9 (Version None)
Quarter: 2010Q1

REPORT INFORMATION
  Report Type: 
  Country: None (occurrence: None)
  Receive Date: 20100303
  Receipt Date: 20100224
  Transmission Date: 20100710
  Serious: Yes (Hospitalization)
  Sender: FDA-Public Use
  Company Number: US-ROCHE-687887

PATIENT
  Age: 54 Year
  Sex: Female
  Weight: 56.2 kg

DRUGS (5)
  1. PEGASYS [Suspect]
     Indication: HEPATITIS C
     Route: 058
     Dates: start: 20090428, end: 20100221
  2. RIBAVIRIN [Suspect]
     Indication: HEPATITIS C
     Route: 048
     Dates: start: 20090428, end: 20100221
  3. PREMARIN [Concomitant]
  4. ATENOLOL [Concomitant]
  5. TRAZODONE HCL [Concomitant]

REACTIONS (6)
  - AGGRESSION [None]
  - BLINDNESS [None]
  - CONFUSIONAL STATE [None]
  - PNEUMONIA [None]
  - REVERSIBLE POSTERIOR LEUKOENCEPHALOPATHY SYNDROME [None]
  - UROSEPSIS [None]
